FAERS Safety Report 9492181 (Version 2)
Quarter: 2013Q3

REPORT INFORMATION
  Report Type: Spontaneous
  Country: US (occurrence: US)
  Receive Date: 20130830
  Receipt Date: 20130923
  Transmission Date: 20140515
  Serious: Yes (Other)
  Sender: FDA-Public Use
  Company Number: US-TEVA-429596USA

PATIENT
  Age: 51 Year
  Sex: Female

DRUGS (1)
  1. COPAXONE [Suspect]
     Dates: start: 2000

REACTIONS (3)
  - Injection site abscess [Unknown]
  - Product formulation issue [Unknown]
  - Injection site injury [Recovered/Resolved with Sequelae]
